FAERS Safety Report 9685125 (Version 1)
Quarter: 2013Q4

REPORT INFORMATION
  Report Type: Spontaneous
  Country: US (occurrence: US)
  Receive Date: 20131113
  Receipt Date: 20131113
  Transmission Date: 20140711
  Serious: Yes (Other)
  Sender: FDA-Public Use
  Company Number: US-SHIRE-ALL1-2013-07650

PATIENT
  Sex: Male
  Weight: 32.65 kg

DRUGS (5)
  1. VYVANSE [Suspect]
     Indication: ATTENTION DEFICIT/HYPERACTIVITY DISORDER
     Dosage: 60 MG, 1X/DAY:QD
     Route: 048
     Dates: start: 2010, end: 2013
  2. VYVANSE [Suspect]
     Dosage: 70 MG, 1X/DAY:QD
     Route: 048
     Dates: start: 2013
  3. METADATE [Concomitant]
     Indication: PRODUCT USED FOR UNKNOWN INDICATION
     Dosage: UNK, UNKNOWN
     Route: 065
  4. CLONIDINE [Concomitant]
     Indication: INSOMNIA
     Dosage: 0.05 MG (ONE IN A HALF TABLETS), 1X/DAY:QD (AT NIGHT)
     Route: 048
  5. SINGULAIR [Concomitant]
     Indication: SEASONAL ALLERGY
     Dosage: 5 MG, 1X/DAY:QD
     Route: 048
     Dates: start: 201306

REACTIONS (10)
  - Hypersensitivity [Recovering/Resolving]
  - Dyspnoea [Recovering/Resolving]
  - Chest discomfort [Recovering/Resolving]
  - Pruritus [Recovering/Resolving]
  - Asthma [Not Recovered/Not Resolved]
  - Weight increased [Not Recovered/Not Resolved]
  - Hunger [Not Recovered/Not Resolved]
  - Urticaria [Recovering/Resolving]
  - Drug ineffective [Not Recovered/Not Resolved]
  - Product quality issue [Unknown]
